FAERS Safety Report 10949982 (Version 1)
Quarter: 2015Q1

REPORT INFORMATION
  Report Type: Spontaneous
  Country: US (occurrence: None)
  Receive Date: 20150226
  Receipt Date: 20150226
  Transmission Date: 20150721
  Serious: Yes (Disabling, Other)
  Sender: FDA-Public Use
  Company Number: TPA2011A02792

PATIENT
  Age: 57 Year
  Sex: Male
  Weight: 79.43 kg

DRUGS (8)
  1. LANSOPRAZOLE (GENERIC) [Suspect]
     Active Substance: LANSOPRAZOLE
     Indication: GASTROOESOPHAGEAL REFLUX DISEASE
     Route: 048
     Dates: start: 2011
  2. HYDROCODONE (HYDROCODONE) [Concomitant]
     Active Substance: HYDROCODONE
  3. ATENOLOL (ATENOLOL) [Concomitant]
     Active Substance: ATENOLOL
  4. TRAZODONE [Concomitant]
     Active Substance: TRAZODONE HYDROCHLORIDE
  5. CYMBALTA [Concomitant]
     Active Substance: DULOXETINE HYDROCHLORIDE
  6. DIAZEPAM (DIAZEPAM) [Concomitant]
     Active Substance: DIAZEPAM
  7. DUONEB (IPRATROPIUM BROMIDE, SALBUTAMOL, SULFATE) [Concomitant]
  8. OXYGEN (OXYGEN) [Concomitant]
     Active Substance: OXYGEN

REACTIONS (3)
  - Drug ineffective [None]
  - Suicidal ideation [None]
  - Pain [None]
